FAERS Safety Report 21926665 (Version 2)
Quarter: 2023Q1

REPORT INFORMATION
  Report Type: Report from Study
  Country: US (occurrence: US)
  Receive Date: 20230130
  Receipt Date: 20230310
  Transmission Date: 20230417
  Serious: No
  Sender: FDA-Public Use
  Company Number: US-BIOVITRUM-2023US01445

PATIENT
  Age: 0 Year
  Sex: Female

DRUGS (3)
  1. SYNAGIS [Suspect]
     Active Substance: PALIVIZUMAB
     Indication: Antiviral prophylaxis
     Route: 030
  2. POLY IRON 150 [Concomitant]
     Dosage: 0.5ML TWO TIMES DAILY
  3. VITAMINS [Concomitant]
     Active Substance: VITAMINS
     Dosage: 1ML DAILY

REACTIONS (2)
  - Injection site rash [Unknown]
  - Product dose omission issue [Unknown]
